FAERS Safety Report 10673174 (Version 1)
Quarter: 2014Q4

REPORT INFORMATION
  Report Type: Report from Study
  Country: ES (occurrence: ES)
  Receive Date: 20141224
  Receipt Date: 20141224
  Transmission Date: 20150529
  Serious: Yes (Other)
  Sender: FDA-Public Use
  Company Number: ES-ROCHE-1511352

PATIENT

DRUGS (5)
  1. LENALIDOMIDE [Suspect]
     Active Substance: LENALIDOMIDE
     Dosage: DAYS 8-14
     Route: 065
  2. LENALIDOMIDE [Suspect]
     Active Substance: LENALIDOMIDE
     Dosage: DAYS 15-21 FOLLOWED BY 7 DAYS OF REST IN A 28-DAY CYCLE
     Route: 065
  3. LENALIDOMIDE [Suspect]
     Active Substance: LENALIDOMIDE
     Dosage: FOR CYCLE 2 AND BEYOND 20 MG WAS GIVEN ON DAYS 1-21 ON A 28 DAY CYCLE
     Route: 065
  4. LENALIDOMIDE [Suspect]
     Active Substance: LENALIDOMIDE
     Indication: CHRONIC LYMPHOCYTIC LEUKAEMIA
     Route: 065
  5. RITUXIMAB [Suspect]
     Active Substance: RITUXIMAB
     Indication: CHRONIC LYMPHOCYTIC LEUKAEMIA
     Dosage: FOR 4 WEEKS STARTING ON DAY 15 OF CYCLE
     Route: 042

REACTIONS (9)
  - Ischaemic stroke [Unknown]
  - Neutropenia [Unknown]
  - Infection [Unknown]
  - Sinusitis [Unknown]
  - Anaemia [Unknown]
  - Diarrhoea [Unknown]
  - Pneumonia [Unknown]
  - Thrombocytopenia [Unknown]
  - Fatigue [Unknown]
